FAERS Safety Report 18648362 (Version 1)
Quarter: 2020Q4

REPORT INFORMATION
  Report Type: Spontaneous
  Country: US (occurrence: US)
  Receive Date: 20201221
  Receipt Date: 20201221
  Transmission Date: 20210114
  Serious: Yes (Hospitalization)
  Sender: FDA-Public Use
  Company Number: None

PATIENT
  Sex: Male

DRUGS (13)
  1. OXYBUTYNIN. [Concomitant]
     Active Substance: OXYBUTYNIN CHLORIDE
  2. RISPERIDONE. [Concomitant]
     Active Substance: RISPERIDONE
  3. NORLYDA [Concomitant]
     Active Substance: NORETHINDRONE
  4. CETIRIZINE [Concomitant]
     Active Substance: CETIRIZINE HYDROCHLORIDE
  5. TRAZODONE [Concomitant]
     Active Substance: TRAZODONE HYDROCHLORIDE
  6. CLONAZEPAM. [Concomitant]
     Active Substance: CLONAZEPAM
  7. FUROSEMIDE. [Concomitant]
     Active Substance: FUROSEMIDE
  8. CLONAXEP ODT [Concomitant]
  9. ESCITALOPRAM [Concomitant]
     Active Substance: ESCITALOPRAM OXALATE
  10. SILDENAFIL. [Concomitant]
     Active Substance: SILDENAFIL
  11. TAMSULOSIN [Concomitant]
     Active Substance: TAMSULOSIN
  12. AMBRISENTAN 5MG TAB [Suspect]
     Active Substance: AMBRISENTAN
     Indication: PULMONARY ARTERIAL HYPERTENSION
     Route: 048
  13. ARIPOPRAZOLE [Concomitant]

REACTIONS (1)
  - Hospitalisation [None]
